FAERS Safety Report 7547640-9 (Version None)
Quarter: 2011Q2

REPORT INFORMATION
  Report Type: 
  Country: None (occurrence: None)
  Receive Date: 20110614
  Receipt Date: 20110607
  Transmission Date: 20111010
  Serious: Yes (Hospitalization)
  Sender: FDA-Public Use
  Company Number: BR-MERCK-1106BRA00023

PATIENT
  Sex: Male
  Weight: 102 kg

DRUGS (3)
  1. PROPRANOLOL HYDROCHLORIDE [Concomitant]
     Indication: HYPERTENSION
     Route: 065
     Dates: start: 20110101
  2. NIFEDIPINE [Concomitant]
     Indication: HYPERTENSION
     Route: 065
     Dates: start: 20110101
  3. COZAAR [Suspect]
     Indication: HYPERTENSION
     Route: 065
     Dates: start: 20110101

REACTIONS (1)
  - HYPERTENSION [None]
